FAERS Safety Report 5268930-9 (Version None)
Quarter: 2007Q1

REPORT INFORMATION
  Report Type: 
  Country: None (occurrence: None)
  Receive Date: 20070313
  Receipt Date: 20070310
  Transmission Date: 20070707
  Serious: Yes (Other)
  Sender: FDA-Public Use
  Company Number: 227997

PATIENT
  Age: 10 Year
  Sex: Male

DRUGS (1)
  1. SOMATROPIN(SOMATROPIN) UNKNOWN [Suspect]
     Indication: GROWTH HORMONE DEFICIENCY
     Dosage: 0.175 MG/KG, 1/WEEK, SUBCUTANEOUS
     Route: 058
     Dates: start: 19980101, end: 20000101

REACTIONS (2)
  - BLOOD ALKALINE PHOSPHATASE INCREASED [None]
  - FIBROUS DYSPLASIA OF BONE [None]
